FAERS Safety Report 7942504-0 (Version None)
Quarter: 2011Q4

REPORT INFORMATION
  Report Type: 
  Country: None (occurrence: None)
  Receive Date: 20111128
  Receipt Date: 20111121
  Transmission Date: 20120403
  Serious: Yes (Other)
  Sender: FDA-Public Use
  Company Number: GB-GLAXOSMITHKLINE-B0755711A

PATIENT
  Sex: Female
  Weight: 74 kg

DRUGS (3)
  1. ZYBAN [Suspect]
     Indication: ANXIETY
     Dosage: 150MG TWICE PER DAY
     Route: 048
     Dates: start: 20100101
  2. UNKNOWN [Concomitant]
  3. NSAIDS [Suspect]
     Indication: DYSMENORRHOEA
     Route: 065

REACTIONS (6)
  - HAEMOGLOBIN DECREASED [None]
  - OFF LABEL USE [None]
  - PAIN [None]
  - MALAISE [None]
  - GASTROINTESTINAL HAEMORRHAGE [None]
  - GASTRIC ULCER [None]
